FAERS Safety Report 5097352-9 (Version None)
Quarter: 2006Q3

REPORT INFORMATION
  Report Type: 
  Country: None (occurrence: None)
  Receive Date: 20060901
  Receipt Date: 20060816
  Transmission Date: 20061208
  Serious: Yes (Disabling)
  Sender: FDA-Public Use
  Company Number: OSCN-NO-0608S-0236

PATIENT

DRUGS (8)
  1. OMNISCAN [Suspect]
     Indication: DRUG USE FOR UNKNOWN INDICATION
     Dosage: SINGLE DOSE
  2. ASPIRIN [Concomitant]
  3. BISOPROLOL FUMARATE [Concomitant]
  4. FAMOTIDINE [Concomitant]
  5. FENOFIBRATE [Concomitant]
  6. FERROUS FUMARATE [Concomitant]
  7. METOCLOPRAMIDE [Concomitant]
  8. SIMVASTATIN [Concomitant]

REACTIONS (1)
  - NEPHROGENIC FIBROSING DERMOPATHY [None]
